FAERS Safety Report 5358290-7 (Version None)
Quarter: 2007Q2

REPORT INFORMATION
  Report Type: 
  Country: None (occurrence: None)
  Receive Date: 20070614
  Receipt Date: 20070614
  Transmission Date: 20071010
  Serious: Yes (Hospitalization)
  Sender: FDA-Public Use
  Company Number: None

PATIENT
  Sex: Male
  Weight: 87 kg

DRUGS (3)
  1. FLUOROURACIL [Suspect]
     Indication: ORAL NEOPLASM
     Dosage: 600MG M2 IV QD X 5D
     Route: 042
     Dates: start: 20070520, end: 20070525
  2. HYDREA [Suspect]
     Indication: ORAL NEOPLASM
     Dosage: 500MG PO BID
     Route: 048
     Dates: start: 20070520, end: 20070525
  3. CETUXIMAB [Suspect]
     Dosage: 250MG/M2 IV
     Route: 042
     Dates: start: 20070528

REACTIONS (2)
  - MUCOSAL INFLAMMATION [None]
  - PYREXIA [None]
